FAERS Safety Report 8846594 (Version 3)
Quarter: 2012Q4

REPORT INFORMATION
  Report Type: 
  Country: JP (occurrence: JP)
  Receive Date: 20121017
  Receipt Date: 20121116
  Transmission Date: 20130627
  Serious: Yes (Life-Threatening)
  Sender: FDA-Public Use
  Company Number: JP-EISAI INC-E2090-02356-SPO-JP

PATIENT
  Age: 36 Year
  Sex: Male

DRUGS (3)
  1. EXCEGRAN [Suspect]
     Indication: EPILEPTIC SEIZURE
     Route: 048
     Dates: start: 20031210, end: 201112
  2. EXCEGRAN [Suspect]
     Route: 048
     Dates: start: 20111202, end: 20121012
  3. DEPAKENE-R [Concomitant]
     Indication: EPILEPTIC SEIZURE
     Route: 048
     Dates: start: 20121012

REACTIONS (1)
  - Agranulocytosis [Recovered/Resolved]
